FAERS Safety Report 16100025 (Version 3)
Quarter: 2019Q3

REPORT INFORMATION
  Report Type: Spontaneous
  Country: PL (occurrence: PL)
  Receive Date: 20190321
  Receipt Date: 20190829
  Transmission Date: 20191004
  Serious: Yes (Hospitalization, Other)
  Sender: FDA-Public Use
  Company Number: PL-MYLANLABS-2019M1025125

PATIENT
  Age: 67 Year
  Sex: Female

DRUGS (10)
  1. ZOLPIDEM [Interacting]
     Active Substance: ZOLPIDEM TARTRATE
     Indication: INSOMNIA
     Dosage: 40 MILLIGRAM, QD
     Route: 065
  2. ZOLPIDEM [Interacting]
     Active Substance: ZOLPIDEM TARTRATE
     Dosage: DOSE REDUCTION OF 1/4 EVERY 10-14 DAYS
     Route: 065
  3. ZOFENOPRIL [Concomitant]
     Active Substance: ZOFENOPRIL
     Dosage: 7.5 MILLIGRAM, QD
     Route: 065
  4. ZOLPIDEM [Suspect]
     Active Substance: ZOLPIDEM TARTRATE
     Indication: SLEEP DISORDER
     Dosage: 10 MILLIGRAM, QD (AT BEDTIME)
  5. MELATONIN [Interacting]
     Active Substance: MELATONIN
     Indication: PRODUCT USED FOR UNKNOWN INDICATION
     Dosage: 5 MILLIGRAM, QD 5 MG AT 10PM
     Route: 065
  6. HYDROXYZINE [Concomitant]
     Active Substance: HYDROXYZINE HYDROCHLORIDE
     Indication: PRODUCT USED FOR UNKNOWN INDICATION
     Dosage: 50 MILLIGRAM, QD
     Route: 065
  7. TICAGRELOR. [Interacting]
     Active Substance: TICAGRELOR
     Indication: PRODUCT USED FOR UNKNOWN INDICATION
     Dosage: 180 MILLIGRAM, QD
     Route: 065
  8. PERAZINE [Concomitant]
     Active Substance: PERAZINE
     Indication: PRODUCT USED FOR UNKNOWN INDICATION
     Dosage: 200 MILLIGRAM, QD
     Route: 065
  9. ACETYLSALICYLIC ACID [Concomitant]
     Active Substance: ASPIRIN
     Dosage: 100 MILLIGRAM, QD
     Route: 065
  10. EPLERENONE. [Concomitant]
     Active Substance: EPLERENONE
     Dosage: 50 MILLIGRAM, QD
     Route: 065

REACTIONS (10)
  - Attention deficit/hyperactivity disorder [Unknown]
  - Tachyphylaxis [Unknown]
  - Memory impairment [Unknown]
  - Hypoaesthesia [Unknown]
  - Chest pain [Unknown]
  - Drug interaction [Unknown]
  - Disturbance in attention [Unknown]
  - Vascular stent thrombosis [Unknown]
  - Intentional product misuse [Unknown]
  - Drug abuse [Unknown]
